FAERS Safety Report 8472223-6 (Version None)
Quarter: 2012Q2

REPORT INFORMATION
  Report Type: 
  Country: None (occurrence: None)
  Receive Date: 20120622
  Receipt Date: 20120622
  Transmission Date: 20120825
  Serious: No
  Sender: FDA-Public Use
  Company Number: None

PATIENT
  Age: 53 Year
  Sex: Male

DRUGS (1)
  1. ENBREL [Suspect]
     Dosage: 50 MG QW SQ
     Route: 058
     Dates: start: 20120326, end: 20120527

REACTIONS (2)
  - INFLAMMATION [None]
  - FATIGUE [None]
